FAERS Safety Report 12480409 (Version 3)
Quarter: 2016Q3

REPORT INFORMATION
  Report Type: Spontaneous
  Country: US (occurrence: US)
  Receive Date: 20160620
  Receipt Date: 20160804
  Transmission Date: 20161109
  Serious: Yes (Other)
  Sender: FDA-Public Use
  Company Number: US-ACORDA-ACO_124975_2016

PATIENT

DRUGS (2)
  1. TYSABRI [Concomitant]
     Active Substance: NATALIZUMAB
     Indication: PRODUCT USED FOR UNKNOWN INDICATION
  2. AMPYRA [Suspect]
     Active Substance: DALFAMPRIDINE
     Indication: PRODUCT USED FOR UNKNOWN INDICATION
     Dosage: UNK
     Route: 065

REACTIONS (7)
  - Abasia [Unknown]
  - Muscle spasms [Unknown]
  - Walking aid user [Unknown]
  - Fatigue [Unknown]
  - Gait disturbance [Unknown]
  - Limb discomfort [Recovered/Resolved]
  - Multiple sclerosis relapse [Unknown]
